FAERS Safety Report 19476901 (Version 1)
Quarter: 2021Q2

REPORT INFORMATION
  Report Type: Spontaneous
  Country: JP (occurrence: JP)
  Receive Date: 20210630
  Receipt Date: 20210630
  Transmission Date: 20210717
  Serious: Yes (Hospitalization)
  Sender: FDA-Public Use
  Company Number: JP-TEVA-2021-JP-1928665

PATIENT
  Age: 65 Year
  Sex: Female

DRUGS (16)
  1. DEXAMETHASONE. [Suspect]
     Active Substance: DEXAMETHASONE
     Indication: KERATITIS
     Route: 057
  2. FLUOROMETHOLONE. [Suspect]
     Active Substance: FLUOROMETHOLONE
     Indication: FUSARIUM INFECTION
     Route: 065
  3. PREDNISOLONE. [Suspect]
     Active Substance: PREDNISOLONE
     Indication: KERATITIS
     Route: 048
  4. TOCILIZUMAB. [Suspect]
     Active Substance: TOCILIZUMAB
     Indication: RHEUMATOID ARTHRITIS
     Route: 041
  5. TOCILIZUMAB. [Suspect]
     Active Substance: TOCILIZUMAB
     Indication: RHEUMATOID ARTHRITIS
     Dosage: 7 DAYS AFTER HOSPITALISATION
     Route: 041
  6. BETAMETHASONE. [Suspect]
     Active Substance: BETAMETHASONE
     Indication: KERATITIS
  7. CEFTRIAXONE. [Concomitant]
     Active Substance: CEFTRIAXONE
     Indication: KERATITIS
     Route: 065
  8. TOBRAMYCIN. [Concomitant]
     Active Substance: TOBRAMYCIN
     Indication: KERATITIS
     Dosage: HOURLY
     Route: 065
  9. BETAMETHASONE. [Suspect]
     Active Substance: BETAMETHASONE
     Indication: KERATITIS
     Route: 065
  10. BETAMETHASONE. [Suspect]
     Active Substance: BETAMETHASONE
     Indication: KERATITIS
     Dosage: 0.1% BETAMETHASONE ADMINISTRATION WAS INCREASED TO 6 TIMES DAILY
     Route: 065
  11. NATAMYCIN [Concomitant]
     Active Substance: NATAMYCIN
     Indication: FUSARIUM INFECTION
     Dosage: OINTMENT 6 TIMES DAILY
     Route: 065
  12. BETAMETHASONE. [Suspect]
     Active Substance: BETAMETHASONE
     Indication: KERATITIS
     Dosage: 3 TIMES DAILY
     Route: 065
  13. TACROLIMUS. [Concomitant]
     Active Substance: TACROLIMUS
     Indication: KERATITIS
     Route: 065
  14. MOXIFLOXACIN. [Concomitant]
     Active Substance: MOXIFLOXACIN
     Indication: KERATITIS
     Dosage: HOURLY
     Route: 061
  15. VORICONAZOLE. [Concomitant]
     Active Substance: VORICONAZOLE
     Indication: FUSARIUM INFECTION
     Dosage: HOURLY
     Route: 061
  16. AMPHOTERICIN?B?LIPOSOMAL [Concomitant]
     Active Substance: AMPHOTERICIN B
     Indication: FUSARIUM INFECTION
     Route: 042

REACTIONS (5)
  - Vitreous opacities [Recovered/Resolved]
  - Endophthalmitis [Recovered/Resolved]
  - Fusarium infection [Recovered/Resolved]
  - Infective keratitis [Recovered/Resolved]
  - Hypopyon [Recovered/Resolved]
